FAERS Safety Report 7283884-1 (Version None)
Quarter: 2011Q1

REPORT INFORMATION
  Report Type: 
  Country: None (occurrence: None)
  Receive Date: 20110126
  Receipt Date: 20101231
  Transmission Date: 20110831
  Serious: Yes (Death)
  Sender: FDA-Public Use
  Company Number: AUR-APL-2011-00167

PATIENT
  Age: 44 Year
  Sex: Female

DRUGS (9)
  1. METFORMIN/PIOGLITAZONE [Suspect]
     Dosage: ORAL
     Route: 048
  2. ACETAMINOPHEN/DIPHENYDRAMINE [Suspect]
     Dosage: ORAL
     Route: 048
  3. HYDROCHLOROTHIAZIDE [Suspect]
     Dosage: ORAL
     Route: 048
  4. LISINOPRIL AND HYDROCHLOROTHIAZIDE [Suspect]
     Dosage: ORAL
     Route: 048
  5. ACETYLSALICYLIC ACID [Suspect]
     Dosage: ORAL
     Route: 048
  6. ATENOLOL [Suspect]
     Dosage: ORAL
     Route: 048
  7. IBUPROFEN [Suspect]
     Dosage: ORAL
     Route: 048
  8. ETHANOL [Suspect]
     Dosage: ORAL
     Route: 048
  9. DIPHENHYDRAMINE [Suspect]
     Dosage: ORAL
     Route: 048

REACTIONS (2)
  - COMPLETED SUICIDE [None]
  - TOXICITY TO VARIOUS AGENTS [None]
